FAERS Safety Report 6341630-X (Version None)
Quarter: 2009Q3

REPORT INFORMATION
  Report Type: 
  Country: None (occurrence: None)
  Receive Date: 20090902
  Receipt Date: 20090902
  Transmission Date: 20100115
  Serious: Yes (Hospitalization)
  Sender: FDA-Public Use
  Company Number: None

PATIENT
  Sex: Male
  Weight: 61.2356 kg

DRUGS (1)
  1. PRAVASTATIN [Suspect]
     Indication: HYPERLIPIDAEMIA
     Dosage: 20MG DAILY PO - 047
     Route: 048
     Dates: start: 20090501, end: 20090801

REACTIONS (3)
  - MENTAL STATUS CHANGES [None]
  - RHABDOMYOLYSIS [None]
  - TRANSAMINASES INCREASED [None]
